FAERS Safety Report 9875285 (Version 1)
Quarter: 2014Q1

REPORT INFORMATION
  Report Type: Spontaneous
  Country: US (occurrence: None)
  Receive Date: 20140205
  Receipt Date: 20140205
  Transmission Date: 20141002
  Serious: Yes (Death)
  Sender: FDA-Public Use
  Company Number: None

PATIENT
  Age: 73 Year
  Sex: Female

DRUGS (2)
  1. TEMOZOLOMIDE [Suspect]
     Indication: MALIGNANT MELANOMA
     Route: 048
     Dates: start: 20140107, end: 20140131
  2. TEMOZOLOMIDE [Suspect]
     Route: 048
     Dates: start: 20140107, end: 20140131

REACTIONS (2)
  - Disease progression [None]
  - Unevaluable event [None]
